FAERS Safety Report 19258661 (Version 3)
Quarter: 2021Q3

REPORT INFORMATION
  Report Type: Spontaneous
  Country: JP (occurrence: JP)
  Receive Date: 20210514
  Receipt Date: 20210721
  Transmission Date: 20211014
  Serious: Yes (Other)
  Sender: FDA-Public Use
  Company Number: JP-MYLANLABS-2021M1028007

PATIENT
  Age: 52 Year
  Sex: Female

DRUGS (16)
  1. CARBOPLATIN. [Suspect]
     Active Substance: CARBOPLATIN
     Indication: METASTASES TO LIVER
  2. IRINOTECAN [Suspect]
     Active Substance: IRINOTECAN
     Indication: NEUROENDOCRINE CARCINOMA METASTATIC
     Route: 065
  3. AMRUBICIN [Suspect]
     Active Substance: AMRUBICIN
     Indication: METASTASES TO LIVER
  4. IRINOTECAN [Suspect]
     Active Substance: IRINOTECAN
     Indication: NASAL SINUS CANCER
  5. IRINOTECAN [Suspect]
     Active Substance: IRINOTECAN
     Indication: METASTASES TO LIVER
  6. AMRUBICIN [Suspect]
     Active Substance: AMRUBICIN
     Indication: NASAL SINUS CANCER
  7. NIVOLUMAB [Suspect]
     Active Substance: NIVOLUMAB
     Indication: NASAL SINUS CANCER
  8. NIVOLUMAB [Suspect]
     Active Substance: NIVOLUMAB
     Indication: NEUROENDOCRINE CARCINOMA METASTATIC
     Route: 065
  9. CARBOPLATIN. [Suspect]
     Active Substance: CARBOPLATIN
     Indication: NEUROENDOCRINE CARCINOMA METASTATIC
     Route: 065
  10. IRINOTECAN [Suspect]
     Active Substance: IRINOTECAN
     Indication: METASTASES TO BONE
  11. AMRUBICIN [Suspect]
     Active Substance: AMRUBICIN
     Indication: METASTASES TO BONE
  12. NIVOLUMAB [Suspect]
     Active Substance: NIVOLUMAB
     Indication: METASTASES TO BONE
  13. CARBOPLATIN. [Suspect]
     Active Substance: CARBOPLATIN
     Indication: NASAL SINUS CANCER
  14. NIVOLUMAB [Suspect]
     Active Substance: NIVOLUMAB
     Indication: METASTASES TO LIVER
  15. CARBOPLATIN. [Suspect]
     Active Substance: CARBOPLATIN
     Indication: METASTASES TO BONE
  16. AMRUBICIN [Suspect]
     Active Substance: AMRUBICIN
     Indication: NEUROENDOCRINE CARCINOMA METASTATIC
     Route: 065

REACTIONS (1)
  - Drug ineffective [Unknown]
